FAERS Safety Report 11271945 (Version 1)
Quarter: 2015Q3

REPORT INFORMATION
  Report Type: Spontaneous
  Country: AU (occurrence: AU)
  Receive Date: 20150715
  Receipt Date: 20150715
  Transmission Date: 20151125
  Serious: Yes (Death)
  Sender: FDA-Public Use
  Company Number: AU-ASTRAZENECA-2015SE66740

PATIENT
  Sex: Male

DRUGS (3)
  1. HUMALOG MIX [Suspect]
     Active Substance: INSULIN LISPRO
     Dosage: 50
     Route: 065
  2. BYETTA [Suspect]
     Active Substance: EXENATIDE
     Route: 065
  3. HUMALOG MIX [Suspect]
     Active Substance: INSULIN LISPRO
     Dosage: 25
     Route: 065

REACTIONS (1)
  - Pancreatic carcinoma [Fatal]
